FAERS Safety Report 8134077 (Version 5)
Quarter: 2013Q1

REPORT INFORMATION
  Report Type: Spontaneous
  Country: GB (occurrence: None)
  Receive Date: 20110901
  Receipt Date: 20130329
  Transmission Date: 20140127
  Serious: Yes (Other)
  Sender: FDA-Public Use
  Company Number: AUR-APL-2011-04698

PATIENT
  Age: 47 Year
  Sex: Male

DRUGS (4)
  1. FLUOXETINE [Suspect]
     Dates: start: 200907
  2. CLOZAPINE [Suspect]
     Route: 048
     Dates: start: 20110809
  3. HYOSCINE [Concomitant]
  4. OMEPRAZOLE [Concomitant]

REACTIONS (13)
  - COUGH [None]
  - DECREASED APPETITE [None]
  - WEIGHT DECREASED [None]
  - LETHARGY [None]
  - DIARRHOEA [None]
  - HYPERHIDROSIS [None]
  - ABDOMINAL PAIN [None]
  - BLOOD ALKALINE PHOSPHATASE INCREASED [None]
  - C-REACTIVE PROTEIN INCREASED [None]
  - PROTEIN TOTAL DECREASED [None]
  - CONSTIPATION [None]
  - GAMMA-GLUTAMYLTRANSFERASE INCREASED [None]
  - IMMUNODEFICIENCY [None]
